FAERS Safety Report 18384235 (Version 1)
Quarter: 2020Q4

REPORT INFORMATION
  Report Type: Spontaneous
  Country: US (occurrence: US)
  Receive Date: 20201014
  Receipt Date: 20201014
  Transmission Date: 20210114
  Serious: No
  Sender: FDA-Public Use
  Company Number: US-INTRA-CELLULAR THERAPIES, INC.-2020ICT00098

PATIENT
  Age: 73 Year
  Sex: Female
  Weight: 91.61 kg

DRUGS (13)
  1. CAPLYTA [Suspect]
     Active Substance: LUMATEPERONE
     Indication: BORDERLINE PERSONALITY DISORDER
  2. VOLTAREN [Concomitant]
     Active Substance: DICLOFENAC SODIUM
     Dosage: UNK, AS NEEDED
  3. LINZESS [Concomitant]
     Active Substance: LINACLOTIDE
     Dosage: 145 ?G, 1X/DAY AS NEEDED
  4. ROSUVASTATIN. [Concomitant]
     Active Substance: ROSUVASTATIN
     Dosage: 5 MG, 3X/WEEK
  5. LISINOPRIL. [Concomitant]
     Active Substance: LISINOPRIL
     Dosage: 2.5 MG, 1X/DAY
  6. ADVAIR HFA [Concomitant]
     Active Substance: FLUTICASONE PROPIONATE\SALMETEROL XINAFOATE
     Dosage: 1 PUFF, 2X/DAY
  7. FERROUS SULFATE. [Concomitant]
     Active Substance: FERROUS SULFATE
     Dosage: 325 MG, 1X/DAY
  8. CAPLYTA [Suspect]
     Active Substance: LUMATEPERONE
     Indication: MAJOR DEPRESSION
     Dosage: 42 MG, 1X/DAY
     Route: 048
     Dates: start: 20200702, end: 202008
  9. TRAZODONE [Concomitant]
     Active Substance: TRAZODONE HYDROCHLORIDE
     Dosage: 50 MG, 1X/DAY AT BEDTIME
  10. METFORMIN [Concomitant]
     Active Substance: METFORMIN HYDROCHLORIDE
     Dosage: 500 MG, 1X/DAY IN AM
  11. VITAMIN D [Concomitant]
     Active Substance: VITAMIN D NOS
     Dosage: 50000 IU, 1X/WEEK
  12. FOLIC ACID. [Concomitant]
     Active Substance: FOLIC ACID
     Dosage: 1 MG, 1X/DAY
  13. TRINTELLIX [Concomitant]
     Active Substance: VORTIOXETINE HYDROBROMIDE
     Dosage: 5 MG, 1X/DAY

REACTIONS (4)
  - Insomnia [Recovered/Resolved]
  - Weight decreased [Unknown]
  - Off label use [Recovered/Resolved]
  - Restless legs syndrome [Recovered/Resolved]

NARRATIVE: CASE EVENT DATE: 202007
